FAERS Safety Report 6234810-5 (Version None)
Quarter: 2009Q2

REPORT INFORMATION
  Report Type: 
  Country: None (occurrence: None)
  Receive Date: 20090615
  Receipt Date: 20090528
  Transmission Date: 20091009
  Serious: No
  Sender: FDA-Public Use
  Company Number: F03200900058

PATIENT
  Age: 21 Year

DRUGS (6)
  1. FLUDARABINE PHOSPHATE [Suspect]
     Indication: STEM CELL TRANSPLANT
  2. (ALEMTUZUMAB) - UNKNOWN - UNIT DOSE : UNKNOWN [Suspect]
     Indication: STEM CELL TRANSPLANT
  3. (BUSULPHAN) - UNKNOWN - UNIT DOSE : UNKNOWN [Suspect]
     Indication: STEM CELL TRANSPLANT
  4. (CO-TRIMOXAZOLE) - UNKNOWN - UNIT DOSE : UNKNOWN [Suspect]
     Indication: PROPHYLAXIS
  5. CYCLOSPORINE [Suspect]
     Indication: PROPHYLAXIS AGAINST GRAFT VERSUS HOST DISEASE
  6. ITRACONAZOLE [Suspect]
     Indication: ANTIFUNGAL PROPHYLAXIS

REACTIONS (3)
  - ACUTE GRAFT VERSUS HOST DISEASE IN SKIN [None]
  - DRUG INEFFECTIVE [None]
  - STEM CELL TRANSPLANT [None]
